FAERS Safety Report 6768909-1 (Version None)
Quarter: 2010Q2

REPORT INFORMATION
  Report Type: 
  Country: None (occurrence: None)
  Receive Date: 20100603
  Receipt Date: 20100528
  Transmission Date: 20101027
  Serious: Yes (Hospitalization)
  Sender: FDA-Public Use
  Company Number: FABR-1000768

PATIENT
  Age: 14 Year
  Sex: Male
  Weight: 46.3 kg

DRUGS (15)
  1. FABRAZYME [Suspect]
     Indication: FABRY'S DISEASE
     Dosage: 35 MG, INTRAVENOUS; 45 MG, Q2W, INTRAVENOUS
     Route: 042
     Dates: start: 20050923, end: 20091001
  2. FABRAZYME [Suspect]
     Indication: FABRY'S DISEASE
     Dosage: 35 MG, INTRAVENOUS; 45 MG, Q2W, INTRAVENOUS
     Route: 042
     Dates: start: 20090101
  3. FABRAZYME [Suspect]
  4. FABRAZYME [Suspect]
  5. FABRAZYME [Concomitant]
  6. FABRAZYME [Suspect]
  7. LYRICA [Concomitant]
  8. ACETAMINOPHEN [Concomitant]
  9. MOTRIN [Concomitant]
  10. ALLEGRA [Concomitant]
  11. IBUPROFEN [Concomitant]
  12. BENADRYL [Concomitant]
  13. SOLU-CORTEF [Concomitant]
  14. PULMICORT [Concomitant]
  15. OXYCODONE HCL [Concomitant]

REACTIONS (13)
  - BACTERAEMIA [None]
  - BLOOD CULTURE POSITIVE [None]
  - BURNING SENSATION [None]
  - CATHETER CULTURE POSITIVE [None]
  - CHILLS [None]
  - DEVICE RELATED INFECTION [None]
  - HEART RATE INCREASED [None]
  - PAIN [None]
  - PAIN IN EXTREMITY [None]
  - PARAESTHESIA [None]
  - PYREXIA [None]
  - STAPHYLOCOCCAL INFECTION [None]
  - VOMITING [None]
